FAERS Safety Report 13991386 (Version 1)
Quarter: 2017Q3

REPORT INFORMATION
  Report Type: Report from Study
  Country: None (occurrence: PT)
  Receive Date: 20170920
  Receipt Date: 20170920
  Transmission Date: 20171128
  Serious: Yes (Other)
  Sender: FDA-Public Use
  Company Number: PT-ABBVIE-17K-130-2105253-00

PATIENT
  Age: 41 Year
  Sex: Female

DRUGS (7)
  1. NOLOTIL [Concomitant]
     Active Substance: METAMIZOLE
     Indication: CONVULSION PROPHYLAXIS
  2. TOPIRAMATE. [Concomitant]
     Active Substance: TOPIRAMATE
     Indication: CONVULSION PROPHYLAXIS
  3. BRUFEN [Concomitant]
     Active Substance: IBUPROFEN
     Indication: CONVULSION PROPHYLAXIS
  4. HUMIRA [Suspect]
     Active Substance: ADALIMUMAB
     Indication: PSORIASIS
     Route: 058
     Dates: start: 2016
  5. NOLOTIL [Concomitant]
     Active Substance: METAMIZOLE
     Indication: HEADACHE
     Dosage: UNKNOWN
     Route: 048
     Dates: start: 20170910
  6. TOPIRAMATE. [Concomitant]
     Active Substance: TOPIRAMATE
     Indication: HEADACHE
     Dosage: UNKNOWN
     Route: 048
     Dates: start: 20170910
  7. BRUFEN [Concomitant]
     Active Substance: IBUPROFEN
     Indication: HEADACHE
     Dosage: UNKNOWN
     Route: 048
     Dates: start: 20170910

REACTIONS (2)
  - Headache [Not Recovered/Not Resolved]
  - Seizure [Recovered/Resolved]

NARRATIVE: CASE EVENT DATE: 2017
